FAERS Safety Report 15455259 (Version 1)
Quarter: 2018Q3

REPORT INFORMATION
  Report Type: Spontaneous
  Country: US (occurrence: US)
  Receive Date: 20180925
  Receipt Date: 20180925
  Transmission Date: 20181010
  Serious: No
  Sender: FDA-Public Use
  Company Number: None

PATIENT
  Age: 55 Year
  Sex: Female

DRUGS (2)
  1. MENOPUR [Suspect]
     Active Substance: FOLLITROPIN\LUTEINIZING HORMONE
     Indication: INFERTILITY
     Dosage: ?          OTHER STRENGTH:75 IU/VL;OTHER DOSE:150 U;?
     Route: 058
     Dates: start: 20180907
  2. GONAL?F RFF [Suspect]
     Active Substance: FOLLITROPIN
     Indication: INFERTILITY
     Dosage: ?          OTHER DOSE:300 U;?
     Route: 058
     Dates: start: 20180907

REACTIONS (1)
  - Chest discomfort [None]

NARRATIVE: CASE EVENT DATE: 20180907
